FAERS Safety Report 5992472-6 (Version None)
Quarter: 2008Q4

REPORT INFORMATION
  Report Type: 
  Country: None (occurrence: None)
  Receive Date: 20081202
  Receipt Date: 20071005
  Transmission Date: 20090506
  Serious: Yes (Other)
  Sender: FDA-Public Use
  Company Number: WAES 0710USA01377

PATIENT
  Age: 82 Year
  Sex: Female

DRUGS (10)
  1. FOSAMAX [Suspect]
     Dosage: PO
     Route: 048
     Dates: start: 20070421, end: 20070701
  2. DIOVAN HCT [Concomitant]
  3. DYNACIRC CR [Concomitant]
  4. ALLOPURINOL [Concomitant]
  5. AMITRIPTYLINE HYDROCHLORIDE [Concomitant]
  6. DICLOFENAC SODIUM [Concomitant]
  7. LEVOTHYROXINE SODIUM [Concomitant]
  8. NADOLOL [Concomitant]
  9. SERTRALINE HYDROCHLORIDE [Concomitant]
  10. SIMVASTATIN [Concomitant]

REACTIONS (1)
  - OSTEONECROSIS [None]
